FAERS Safety Report 7251523-1 (Version None)
Quarter: 2011Q1

REPORT INFORMATION
  Report Type: 
  Country: None (occurrence: None)
  Receive Date: 20110128
  Receipt Date: 20110114
  Transmission Date: 20110831
  Serious: Yes (Other)
  Sender: FDA-Public Use
  Company Number: US-ELI_LILLY_AND_COMPANY-US201011001483

PATIENT
  Age: 83 Year
  Sex: Male

DRUGS (2)
  1. FORTEO [Suspect]
     Indication: OSTEOPOROSIS
     Dosage: 20 UG, DAILY (1/D)
     Route: 065
     Dates: start: 20091026
  2. COREG [Concomitant]

REACTIONS (3)
  - INTERVERTEBRAL DISC DISORDER [None]
  - PROSTATIC SPECIFIC ANTIGEN INCREASED [None]
  - PROSTATE CANCER [None]
